FAERS Safety Report 21902157 (Version 11)
Quarter: 2024Q4

REPORT INFORMATION
  Report Type: Spontaneous
  Country: US (occurrence: US)
  Receive Date: 20230124
  Receipt Date: 20241031
  Transmission Date: 20250115
  Serious: No
  Sender: ALEXION PHARMACEUTICALS
  Company Number: US-ALXN-A202300656

PATIENT
  Age: 57 Year

DRUGS (4)
  1. STRENSIQ [Suspect]
     Active Substance: ASFOTASE ALFA
     Indication: Hypophosphatasia
     Dosage: UNK TIW
  2. STRENSIQ [Suspect]
     Active Substance: ASFOTASE ALFA
     Dosage: UNK TIW
  3. STRENSIQ [Suspect]
     Active Substance: ASFOTASE ALFA
     Dosage: UNK TIW
  4. STRENSIQ [Suspect]
     Active Substance: ASFOTASE ALFA
     Dosage: UNK TIW

REACTIONS (11)
  - Tremor [Unknown]
  - Muscular weakness [Unknown]
  - Fatigue [Unknown]
  - Pain [Recovering/Resolving]
  - Increased tendency to bruise [Unknown]
  - Headache [Unknown]
  - Nausea [Unknown]
  - Injection site pain [Recovered/Resolved]
  - Injection site erythema [Unknown]
  - Injection site discolouration [Recovered/Resolved]
  - Injection site reaction [Recovering/Resolving]
